FAERS Safety Report 9613079 (Version 3)
Quarter: 2013Q4

REPORT INFORMATION
  Report Type: Report from Study
  Country: FR (occurrence: FR)
  Receive Date: 20131010
  Receipt Date: 20131213
  Transmission Date: 20140711
  Serious: Yes (Hospitalization, Other)
  Sender: FDA-Public Use
  Company Number: FR-CELGENEUS-056-C4047-13094224

PATIENT
  Age: 68 Year
  Sex: Female
  Weight: 70 kg

DRUGS (9)
  1. CC-4047 [Suspect]
     Indication: PLASMA CELL MYELOMA
     Dosage: 3 MILLIGRAM
     Route: 048
  2. CC-4047 [Suspect]
     Dosage: 2.25 MILLIGRAM
     Route: 048
  3. DEXAMETHASONE [Concomitant]
     Indication: PLASMA CELL MYELOMA
     Route: 065
  4. LMWH [Concomitant]
     Indication: PROPHYLAXIS
     Route: 065
  5. BACTRIM [Concomitant]
     Indication: PROPHYLAXIS
     Route: 065
  6. ZELITREX [Concomitant]
     Indication: PROPHYLAXIS
     Route: 065
  7. AMOXICILLIN [Concomitant]
     Indication: PROPHYLAXIS
     Route: 065
  8. KARDEGIC [Concomitant]
     Indication: PROPHYLAXIS
     Route: 065
  9. ANALGESICS [Concomitant]
     Indication: PAIN
     Route: 065

REACTIONS (4)
  - Ankle fracture [Recovered/Resolved]
  - Pathological fracture [Recovered/Resolved]
  - Asthenia [Not Recovered/Not Resolved]
  - Platelet disorder [Recovering/Resolving]
